APPROVED DRUG PRODUCT: FANAPT
Active Ingredient: ILOPERIDONE
Strength: 12MG
Dosage Form/Route: TABLET;ORAL
Application: N022192 | Product #007
Applicant: VANDA PHARMACEUTICALS INC
Approved: May 6, 2009 | RLD: Yes | RS: No | Type: RX

PATENTS:
Patent 9074255 | Expires: Dec 17, 2030
Patent 9072742 | Expires: Jan 16, 2031
Patent 9157121 | Expires: Apr 5, 2030
Patent 8652776 | Expires: Aug 31, 2030
Patent 8999638 | Expires: Oct 28, 2030
Patent 9074254 | Expires: Dec 28, 2031
Patent 9074256 | Expires: Feb 10, 2031
Patent 8586610 | Expires: Nov 2, 2027

EXCLUSIVITY:
Code: I-939 | Date: Apr 2, 2027